FAERS Safety Report 6838335-5 (Version None)
Quarter: 2010Q3

REPORT INFORMATION
  Report Type: 
  Country: None (occurrence: None)
  Receive Date: 20100713
  Receipt Date: 20070610
  Transmission Date: 20110219
  Serious: No
  Sender: FDA-Public Use
  Company Number: US-PFIZER INC-2007047775

PATIENT
  Sex: Female
  Weight: 84.09 kg

DRUGS (4)
  1. CHANTIX [Suspect]
     Indication: SMOKING CESSATION THERAPY
     Dates: start: 20070530
  2. HYDROCHLOROTHIAZIDE [Concomitant]
     Indication: BLOOD PRESSURE
  3. ACETAMINOPHEN [Concomitant]
     Indication: ARTHRITIS
  4. CELEBREX [Concomitant]

REACTIONS (2)
  - MALAISE [None]
  - NAUSEA [None]
